FAERS Safety Report 9197140 (Version 1)
Quarter: 2013Q1

REPORT INFORMATION
  Report Type: Spontaneous
  Country: US (occurrence: US)
  Receive Date: 20130328
  Receipt Date: 20130328
  Transmission Date: 20140127
  Serious: Yes (Hospitalization)
  Sender: FDA-Public Use
  Company Number: US-ASTRAZENECA-2012SE94669

PATIENT
  Age: 209 Day
  Sex: Male

DRUGS (4)
  1. SYNAGIS [Suspect]
     Route: 030
     Dates: start: 20121114, end: 20121114
  2. SYNAGIS [Suspect]
     Dosage: 50 MG (1.13 ML), EVERY 28-32 DAYS
     Route: 030
     Dates: start: 20121215, end: 20121215
  3. SYNAGIS [Suspect]
     Dosage: EVERY 28-32 DAYS
     Route: 030
     Dates: start: 20130116
  4. SYNAGIS [Suspect]
     Dosage: EVERY 28-32 DAYS
     Route: 030
     Dates: start: 20130215

REACTIONS (4)
  - Bronchiolitis [Recovered/Resolved]
  - Wheezing [Unknown]
  - Rhinorrhoea [Unknown]
  - Cough [Unknown]
